FAERS Safety Report 24987038 (Version 1)
Quarter: 2025Q1

REPORT INFORMATION
  Report Type: Spontaneous
  Country: ZA (occurrence: ZA)
  Receive Date: 20250219
  Receipt Date: 20250219
  Transmission Date: 20250409
  Serious: Yes (Other)
  Sender: PFIZER
  Company Number: ZA-PFIZER INC-PV202500019670

PATIENT
  Age: 57 Year
  Sex: Female
  Weight: 82 kg

DRUGS (3)
  1. SULFASALAZINE [Suspect]
     Active Substance: SULFASALAZINE
     Dosage: 500 MG, 2X/DAY
     Dates: start: 20230621
  2. CHLOROQUINE [Suspect]
     Active Substance: CHLOROQUINE
     Dates: start: 20230621
  3. CYCLOSPORINE [Suspect]
     Active Substance: CYCLOSPORINE
     Dosage: 50 MG, 2X/DAY
     Dates: start: 20230621

REACTIONS (1)
  - Intestinal obstruction [Unknown]
